FAERS Safety Report 23214809 (Version 1)
Quarter: 2023Q4

REPORT INFORMATION
  Report Type: Spontaneous
  Country: ES (occurrence: ES)
  Receive Date: 20231121
  Receipt Date: 20231121
  Transmission Date: 20240110
  Serious: Yes (Hospitalization)
  Sender: FDA-Public Use
  Company Number: None

PATIENT
  Age: 28 Year
  Sex: Female

DRUGS (3)
  1. AMOXICILLIN\CLAVULANIC ACID [Suspect]
     Active Substance: AMOXICILLIN\CLAVULANIC ACID
     Indication: Dental care
     Dates: start: 202308, end: 202308
  2. DEXKETOPROFEN [Suspect]
     Active Substance: DEXKETOPROFEN
     Indication: Dental care
     Dates: start: 202308, end: 202308
  3. METAMIZOLE\PROPOXYPHENE [Suspect]
     Active Substance: METAMIZOLE\PROPOXYPHENE
     Indication: Dental care
     Dosage: 575 MG , 500 CAPSULES
     Dates: start: 202308, end: 202308

REACTIONS (2)
  - Hepatic cytolysis [Recovered/Resolved]
  - Hyperbilirubinaemia [Recovered/Resolved]

NARRATIVE: CASE EVENT DATE: 20230816
